FAERS Safety Report 8992423 (Version 2)
Quarter: 2013Q2

REPORT INFORMATION
  Report Type: Spontaneous
  Country: FR (occurrence: FR)
  Receive Date: 20121231
  Receipt Date: 20130530
  Transmission Date: 20140414
  Serious: Yes (Other)
  Sender: FDA-Public Use
  Company Number: FR-BRISTOL-MYERS SQUIBB COMPANY-17239179

PATIENT
  Age: 85 Year
  Sex: Male
  Weight: 67 kg

DRUGS (7)
  1. ONGLYZA TABS [Suspect]
     Indication: TYPE 2 DIABETES MELLITUS
     Dates: start: 20120910, end: 20121207
  2. LOXEN LP [Concomitant]
     Indication: HYPERTENSION
     Dates: start: 2003
  3. PLAVIX [Concomitant]
     Indication: ARTERIAL DISORDER
     Dates: start: 2002
  4. RILMENIDINE [Concomitant]
     Indication: HYPERTENSION
     Dates: start: 2002
  5. BIPRETERAX [Concomitant]
     Indication: HYPERTENSION
     Dates: start: 2003
  6. PERMIXON [Concomitant]
     Indication: BENIGN PROSTATIC HYPERPLASIA
     Dates: start: 2002
  7. DIAMICRON [Concomitant]
     Indication: DIABETES MELLITUS
     Dates: start: 2003

REACTIONS (2)
  - Transaminases increased [Recovered/Resolved]
  - Gamma-glutamyltransferase increased [Recovered/Resolved]
